FAERS Safety Report 5236204-8 (Version None)
Quarter: 2007Q1

REPORT INFORMATION
  Report Type: 
  Country: None (occurrence: None)
  Receive Date: 20070212
  Receipt Date: 20070129
  Transmission Date: 20070707
  Serious: Yes (Other)
  Sender: FDA-Public Use
  Company Number: US-ELI_LILLY_AND_COMPANY-US200701006013

PATIENT
  Age: 80 Year
  Sex: Female

DRUGS (1)
  1. EVISTA [Suspect]
     Indication: GAIT DISTURBANCE
     Dosage: UNK, UNKNOWN
     Route: 048
     Dates: start: 20050101, end: 20070128

REACTIONS (4)
  - BURNING SENSATION [None]
  - CATARACT OPERATION [None]
  - HOT FLUSH [None]
  - VISION BLURRED [None]
